FAERS Safety Report 6638341-X (Version None)
Quarter: 2010Q1

REPORT INFORMATION
  Report Type: 
  Country: None (occurrence: None)
  Receive Date: 20100316
  Receipt Date: 20100316
  Transmission Date: 20100710
  Serious: Yes (Death, Hospitalization)
  Sender: FDA-Public Use
  Company Number: None

PATIENT
  Age: 56 Year
  Sex: Male
  Weight: 84 kg

DRUGS (1)
  1. BACTRIM [Suspect]
     Dosage: ORAL 047
     Route: 048

REACTIONS (6)
  - COAGULOPATHY [None]
  - LIVER TRANSPLANT [None]
  - MENTAL STATUS CHANGES [None]
  - MYALGIA [None]
  - MYOCARDIAL INFARCTION [None]
  - PYREXIA [None]
